FAERS Safety Report 12560672 (Version 1)
Quarter: 2016Q3

REPORT INFORMATION
  Report Type: Report from Study
  Country: JP (occurrence: JP)
  Receive Date: 20160715
  Receipt Date: 20160715
  Transmission Date: 20161109
  Serious: Yes (Death)
  Sender: FDA-Public Use
  Company Number: JP-SUN PHARMACEUTICAL INDUSTRIES LTD-2016RR-117810

PATIENT
  Age: 52 Year
  Sex: Male

DRUGS (5)
  1. CALCIUM FOLINAT [Suspect]
     Active Substance: LEUCOVORIN CALCIUM
     Indication: RECTAL CANCER
     Dosage: 200 MG/M2/2 HOURS, CYCLICAL
     Route: 051
  2. 5-FLUOROURACIL [Suspect]
     Active Substance: FLUOROURACIL
     Indication: RECTAL CANCER
     Dosage: 400 MG/M2/BOLUS, CYCLICAL
     Route: 051
  3. 5-FLUOROURACIL [Suspect]
     Active Substance: FLUOROURACIL
     Indication: RECTAL CANCER
     Dosage: 2400 MG/M2/46 HOURS, UNK
     Route: 051
  4. OXALIPLATIN. [Suspect]
     Active Substance: OXALIPLATIN
     Indication: RECTAL CANCER
     Dosage: 85 MG/M2/ 2 HOURS, CYCLICAL
     Route: 051
  5. BEVACIZUMAB [Suspect]
     Active Substance: BEVACIZUMAB
     Indication: RECTAL CANCER
     Dosage: 5 MG/KG/30 MIN, CYCLICAL
     Route: 051

REACTIONS (2)
  - Neurotoxicity [Unknown]
  - Disease progression [Fatal]
